FAERS Safety Report 23070277 (Version 1)
Quarter: 2023Q4

REPORT INFORMATION
  Report Type: Spontaneous
  Country: CN (occurrence: CN)
  Receive Date: 20231016
  Receipt Date: 20231016
  Transmission Date: 20240109
  Serious: Yes (Hospitalization)
  Sender: FDA-Public Use
  Company Number: CN-PFIZER INC-PV202300167111

PATIENT
  Age: 4 Year
  Sex: Male

DRUGS (1)
  1. ZITHROMAX [Suspect]
     Active Substance: AZITHROMYCIN DIHYDRATE
     Indication: Pneumonia
     Dosage: 0.15 G, 1X/DAY
     Route: 041
     Dates: start: 20231006, end: 20231006

REACTIONS (5)
  - Rash [Recovering/Resolving]
  - Vomiting [Recovered/Resolved]
  - Abdominal discomfort [Recovered/Resolved]
  - Rash erythematous [Recovered/Resolved]
  - Off label use [Unknown]

NARRATIVE: CASE EVENT DATE: 20231006
